FAERS Safety Report 4985272-7 (Version None)
Quarter: 2006Q2

REPORT INFORMATION
  Report Type: 
  Country: None (occurrence: None)
  Receive Date: 20060427
  Receipt Date: 20051020
  Transmission Date: 20061013
  Serious: Yes (Hospitalization)
  Sender: FDA-Public Use
  Company Number: US-MERCK-0510USA08337

PATIENT
  Age: 41 Year
  Sex: Female
  Weight: 76 kg

DRUGS (13)
  1. VIOXX [Suspect]
     Indication: ARTHRITIS
     Route: 048
     Dates: start: 20030401, end: 20040901
  2. NEXIUM [Concomitant]
     Route: 065
  3. ZOLOFT [Concomitant]
     Route: 065
  4. HYDROCODONE BITARTRATE [Concomitant]
     Route: 065
  5. PENICILLIN (UNSPECIFIED) [Concomitant]
     Route: 065
  6. METOCLOPRAMIDE [Concomitant]
     Route: 065
  7. PHENAZOPYRIDINE HYDROCHLORIDE [Concomitant]
     Route: 065
  8. SULFAMETHOXAZOLE [Concomitant]
     Route: 065
  9. LAMISIL [Concomitant]
     Route: 065
  10. LIPITOR [Concomitant]
     Route: 065
  11. PLAVIX [Concomitant]
     Route: 065
  12. CIPROFLOXACIN HCL [Concomitant]
     Route: 065
  13. DOCUSATE SODIUM [Concomitant]
     Route: 065

REACTIONS (13)
  - ABDOMINAL WALL MASS [None]
  - ACUTE MYOCARDIAL INFARCTION [None]
  - ACUTE SINUSITIS [None]
  - ASTHMA [None]
  - BACK PAIN [None]
  - COSTOCHONDRITIS [None]
  - COUGH [None]
  - HERNIA [None]
  - HYPERHIDROSIS [None]
  - INCISIONAL HERNIA [None]
  - POSTINFARCTION ANGINA [None]
  - SELF-MEDICATION [None]
  - WEIGHT INCREASED [None]
